FAERS Safety Report 7374219-4 (Version None)
Quarter: 2011Q1

REPORT INFORMATION
  Report Type: 
  Country: None (occurrence: None)
  Receive Date: 20110316
  Receipt Date: 20110105
  Transmission Date: 20110831
  Serious: Yes (Life-Threatening, Hospitalization)
  Sender: FDA-Public Use
  Company Number: 2010001515

PATIENT
  Age: 73 Year
  Sex: Male

DRUGS (3)
  1. ERLOTINIB HYDROCHLORIDE [Suspect]
     Indication: NON-SMALL CELL LUNG CANCER
     Dosage: (150 MG,QO),ORAL
     Route: 048
     Dates: start: 20100311, end: 20100413
  2. NEURONTIN [Concomitant]
  3. CODEINE (CODEINE) [Concomitant]

REACTIONS (11)
  - LUNG DISORDER [None]
  - DYSPNOEA [None]
  - CHEST PAIN [None]
  - HAEMATOCRIT DECREASED [None]
  - HAEMOGLOBIN DECREASED [None]
  - HEPATOJUGULAR REFLUX [None]
  - PCO2 DECREASED [None]
  - NON-SMALL CELL LUNG CANCER [None]
  - CARBON DIOXIDE INCREASED [None]
  - BLOOD PH DECREASED [None]
  - NEOPLASM MALIGNANT [None]
